FAERS Safety Report 7352207-1 (Version None)
Quarter: 2011Q1

REPORT INFORMATION
  Report Type: 
  Country: None (occurrence: None)
  Receive Date: 20110309
  Receipt Date: 20110309
  Transmission Date: 20110831
  Serious: Yes (Hospitalization)
  Sender: FDA-Public Use
  Company Number: None

PATIENT
  Age: 57 Year
  Sex: Male
  Weight: 70 kg

DRUGS (6)
  1. CELEXA [Concomitant]
  2. VINORELBINE [Suspect]
     Indication: METASTASIS
     Dosage: 20MG/M2  ONCE BIWEEKLY
     Route: 042
     Dates: start: 20110207, end: 20110221
  3. VINORELBINE [Suspect]
     Indication: NEUROENDOCRINE CARCINOMA
     Dosage: 20MG/M2  ONCE BIWEEKLY
     Route: 042
     Dates: start: 20110207, end: 20110221
  4. TEMSIROLIMUS WYETH [Suspect]
     Indication: NEUROENDOCRINE CARCINOMA
     Dosage: 25MG ONCE WEEKLY
     Route: 042
     Dates: start: 20110207, end: 20110226
  5. TEMSIROLIMUS WYETH [Suspect]
     Indication: METASTASIS
     Dosage: 25MG ONCE WEEKLY
     Route: 042
     Dates: start: 20110207, end: 20110226
  6. DOXEPIN [Concomitant]

REACTIONS (3)
  - DIARRHOEA [None]
  - VOMITING [None]
  - NAUSEA [None]
